FAERS Safety Report 16679176 (Version 1)
Quarter: 2019Q3

REPORT INFORMATION
  Report Type: Spontaneous
  Country: US (occurrence: US)
  Receive Date: 20190624
  Receipt Date: 20190624
  Transmission Date: 20191004
  Serious: No
  Sender: FDA-Public Use
  Company Number: None

PATIENT
  Age: 45 Year
  Sex: Female
  Weight: 93.9 kg

DRUGS (3)
  1. STELARA [Suspect]
     Active Substance: USTEKINUMAB
     Indication: CROHN^S DISEASE
     Dosage: INJECT 45MG SUBCUTANEOUSLY ON WEEK 0 AND WEEK 4 AS DIRECTED
     Route: 058
     Dates: start: 201806
  2. STELARA [Suspect]
     Active Substance: USTEKINUMAB
     Indication: ARTHRITIS ENTEROPATHIC
     Dosage: INJECT 45MG SUBCUTANEOUSLY ON WEEK 0 AND WEEK 4 AS DIRECTED
     Route: 058
     Dates: start: 201806
  3. STELARA [Suspect]
     Active Substance: USTEKINUMAB
     Indication: GASTROINTESTINAL DISORDER
     Dosage: INJECT 45MG SUBCUTANEOUSLY ON WEEK 0 AND WEEK 4 AS DIRECTED
     Route: 058
     Dates: start: 201806

REACTIONS (3)
  - Arthralgia [None]
  - Bronchitis [None]
  - Sinusitis [None]
